FAERS Safety Report 6940161-3 (Version None)
Quarter: 2010Q3

REPORT INFORMATION
  Report Type: 
  Country: None (occurrence: None)
  Receive Date: 20100825
  Receipt Date: 20100205
  Transmission Date: 20110219
  Serious: No
  Sender: FDA-Public Use
  Company Number: A0841051A

PATIENT
  Age: 61 Year
  Weight: 75 kg

DRUGS (1)
  1. BEXXAR [Suspect]
     Indication: LYMPHOMA
     Route: 042
     Dates: start: 20100115

REACTIONS (2)
  - NO ADVERSE EVENT [None]
  - WRONG TECHNIQUE IN DRUG USAGE PROCESS [None]
